FAERS Safety Report 7763189-2 (Version None)
Quarter: 2011Q3

REPORT INFORMATION
  Report Type: 
  Country: None (occurrence: None)
  Receive Date: 20110920
  Receipt Date: 20110913
  Transmission Date: 20111222
  Serious: Yes (Hospitalization, Other)
  Sender: FDA-Public Use
  Company Number: PHEH2009US07545

PATIENT
  Sex: Male

DRUGS (28)
  1. ZOMETA [Suspect]
     Indication: PROSTATE CANCER METASTATIC
     Dosage: 1 MG, MONTHLY
     Dates: start: 20020325, end: 20030201
  2. AVANDIA [Concomitant]
  3. SINGULAIR [Concomitant]
  4. AREDIA [Suspect]
     Indication: PROSTATE CANCER METASTATIC
     Dates: start: 20010215, end: 20020325
  5. VICODIN [Concomitant]
  6. ENALAPRIL MALEATE [Concomitant]
  7. CASODEX [Concomitant]
  8. BELLAMINE [Concomitant]
  9. PAXIL [Concomitant]
  10. ATACAND [Concomitant]
  11. METFORMIN HCL [Concomitant]
  12. TEMAZEPAM [Concomitant]
  13. METHADONE HCL [Concomitant]
  14. CIPROFLOXACIN [Concomitant]
  15. PACERONE [Concomitant]
     Dosage: 200 MG, DAILY
  16. FUROSEMIDE [Concomitant]
  17. COREG [Concomitant]
  18. AMIODARONE HCL [Concomitant]
  19. NORCO [Concomitant]
  20. LEVAQUIN [Concomitant]
  21. ADVIL LIQUI-GELS [Concomitant]
  22. LUPRON [Concomitant]
  23. CLEOCIN HYDROCHLORIDE [Concomitant]
     Dosage: 300 MG, Q6H
  24. AREDIA [Suspect]
     Dates: start: 20030201, end: 20041101
  25. COUMADIN [Concomitant]
  26. LISINOPRIL [Concomitant]
  27. CLEOCIN HYDROCHLORIDE [Concomitant]
     Dosage: 600 MG, Q6H
     Route: 042
  28. BISOPROLOL FUMARATE AND HYDROCHLOROTHIAZIDE [Concomitant]

REACTIONS (56)
  - OSTEONECROSIS OF JAW [None]
  - EXPOSED BONE IN JAW [None]
  - CARDIOMYOPATHY [None]
  - SKIN DISORDER [None]
  - TINNITUS [None]
  - NEPHROLITHIASIS [None]
  - MUSCULOSKELETAL CHEST PAIN [None]
  - ATELECTASIS [None]
  - RHINITIS [None]
  - PAIN [None]
  - ANXIETY [None]
  - TOOTH ABSCESS [None]
  - DIABETES MELLITUS [None]
  - ATRIAL FIBRILLATION [None]
  - OBESITY [None]
  - HEPATIC CYST [None]
  - SPINAL OSTEOARTHRITIS [None]
  - CHRONIC OBSTRUCTIVE PULMONARY DISEASE [None]
  - ANAEMIA [None]
  - ADDISON'S DISEASE [None]
  - DEAFNESS [None]
  - INJURY [None]
  - GINGIVAL SWELLING [None]
  - HAEMORRHAGE [None]
  - ATRIAL FLUTTER [None]
  - EPISTAXIS [None]
  - VISION BLURRED [None]
  - DYSPHAGIA [None]
  - ANHEDONIA [None]
  - CARDIAC FAILURE CONGESTIVE [None]
  - COMPRESSION FRACTURE [None]
  - CARDIOMEGALY [None]
  - DEPRESSION [None]
  - VOMITING [None]
  - MALIGNANT MELANOMA [None]
  - RENAL CYST [None]
  - DYSPNOEA [None]
  - PROSTATE CANCER METASTATIC [None]
  - HYPERTENSION [None]
  - METASTASES TO BONE [None]
  - OSTEOMYELITIS [None]
  - PULMONARY FIBROSIS [None]
  - COUGH [None]
  - VOCAL CORD THICKENING [None]
  - LARYNGEAL CYST [None]
  - FALL [None]
  - DISABILITY [None]
  - NAUSEA [None]
  - DYSPHONIA [None]
  - LEFT VENTRICULAR DYSFUNCTION [None]
  - TENDERNESS [None]
  - CATARACT [None]
  - TACHYCARDIA [None]
  - BACK PAIN [None]
  - LIP HAEMORRHAGE [None]
  - PARAESTHESIA [None]
